FAERS Safety Report 25153885 (Version 1)
Quarter: 2025Q2

REPORT INFORMATION
  Report Type: Spontaneous
  Country: US (occurrence: US)
  Receive Date: 20250403
  Receipt Date: 20250403
  Transmission Date: 20250716
  Serious: No
  Sender: LUPIN
  Company Number: US-LUPIN PHARMACEUTICALS INC.-2025-02136

PATIENT

DRUGS (1)
  1. TEMAZEPAM [Suspect]
     Active Substance: TEMAZEPAM
     Indication: Product used for unknown indication
     Route: 065

REACTIONS (3)
  - Fatigue [Unknown]
  - Insomnia [Unknown]
  - Product dose omission issue [Unknown]
